FAERS Safety Report 5818631-0 (Version None)
Quarter: 2008Q3

REPORT INFORMATION
  Report Type: 
  Country: None (occurrence: None)
  Receive Date: 20080723
  Receipt Date: 20080715
  Transmission Date: 20090109
  Serious: Yes (Other)
  Sender: FDA-Public Use
  Company Number: US-ELI_LILLY_AND_COMPANY-US200807003116

PATIENT

DRUGS (2)
  1. HUMALOG [Suspect]
     Dosage: 100 U+, DURING THE DAY
  2. LEVEMIR [Concomitant]
     Dosage: 100 U, EACH EVENING

REACTIONS (2)
  - BLOOD GLUCOSE INCREASED [None]
  - PERITONEAL DIALYSIS [None]
